FAERS Safety Report 7702181-0 (Version None)
Quarter: 2011Q3

REPORT INFORMATION
  Report Type: 
  Country: None (occurrence: None)
  Receive Date: 20110822
  Receipt Date: 20110811
  Transmission Date: 20111222
  Serious: Yes (Hospitalization, Other)
  Sender: FDA-Public Use
  Company Number: US-ASTRAZENECA-2010SE10892

PATIENT
  Age: 55 Year
  Sex: Female

DRUGS (24)
  1. SEROQUEL [Suspect]
     Indication: BIPOLAR I DISORDER
     Route: 048
  2. RISPERDAL [Concomitant]
  3. DEPAKOTE [Concomitant]
  4. SYNTHROID [Concomitant]
  5. NEURONTIN [Concomitant]
  6. TOPROL-XL [Suspect]
     Route: 048
  7. PROGRAF [Concomitant]
     Dosage: 3 MG IN AM AND 2 MG AT BEDTIME
  8. COLACE [Concomitant]
  9. VITAMIN D [Concomitant]
  10. CRESTOR [Suspect]
     Route: 048
  11. TYLENOL-500 [Concomitant]
     Dosage: AS NEEDED
  12. SEROQUEL [Suspect]
     Dosage: 650-700 MG AT NIGHT
     Route: 048
  13. FRAGMIN [Concomitant]
  14. CLONAZEPAM [Concomitant]
  15. MULTI-VITAMIN [Concomitant]
  16. DEPAKOTE [Concomitant]
  17. MYFORTIC [Concomitant]
     Dosage: 720 MG IN AM AND 360 MG AT BEDTIME
  18. CLARITIN [Concomitant]
  19. PROTONIX [Concomitant]
  20. HYDROCHLOROTHIAZIDE [Concomitant]
  21. MAGNESIUM OXIDE [Concomitant]
  22. ROXICET [Concomitant]
     Dosage: 5 MG/325 MG AS NEEDED
  23. ASPIRIN [Concomitant]
  24. OMEGA FISH OIL [Concomitant]

REACTIONS (16)
  - MYOCARDIAL INFARCTION [None]
  - RENAL FAILURE CHRONIC [None]
  - MANIA [None]
  - HYPOTHYROIDISM [None]
  - OSTEOARTHRITIS [None]
  - PYREXIA [None]
  - CEREBROVASCULAR ACCIDENT [None]
  - HYPERCOAGULATION [None]
  - CARDIAC TAMPONADE [None]
  - RENAL TRANSPLANT [None]
  - DELUSION [None]
  - LARYNGITIS [None]
  - ASTHMA [None]
  - PAIN [None]
  - PSYCHOTIC DISORDER [None]
  - DRUG DOSE OMISSION [None]
